FAERS Safety Report 7457678-8 (Version None)
Quarter: 2011Q2

REPORT INFORMATION
  Report Type: 
  Country: None (occurrence: None)
  Receive Date: 20110504
  Receipt Date: 20110427
  Transmission Date: 20111010
  Serious: Yes (Hospitalization, Other)
  Sender: FDA-Public Use
  Company Number: US-ROCHE-749864

PATIENT
  Sex: Male
  Weight: 63.5 kg

DRUGS (3)
  1. ACCUTANE [Suspect]
     Route: 065
     Dates: start: 19990101, end: 20000101
  2. ACCUTANE [Suspect]
     Indication: ACNE
     Route: 065
     Dates: start: 19960101, end: 19970101
  3. MARIJUANA [Concomitant]
     Dates: start: 20000101, end: 20040101

REACTIONS (5)
  - GASTROINTESTINAL INJURY [None]
  - DEPRESSION [None]
  - ABDOMINAL ABSCESS [None]
  - CROHN'S DISEASE [None]
  - INFLAMMATORY BOWEL DISEASE [None]
